FAERS Safety Report 9685784 (Version 1)
Quarter: 2013Q4

REPORT INFORMATION
  Report Type: Spontaneous
  Country: DE (occurrence: DE)
  Receive Date: 20131113
  Receipt Date: 20131113
  Transmission Date: 20140711
  Serious: Yes (Death)
  Sender: FDA-Public Use
  Company Number: DE-TEVA-442711GER

PATIENT
  Sex: Male
  Weight: 80 kg

DRUGS (3)
  1. IBUPROFEN ABZ [Suspect]
     Indication: CHEST PAIN
     Route: 048
  2. CLARITHROMYCIN 1A PHARMA [Suspect]
     Indication: BRONCHITIS
     Route: 048
     Dates: start: 20130626, end: 20130806
  3. ACC [Concomitant]
     Route: 048

REACTIONS (1)
  - Pancreatitis necrotising [Fatal]
